FAERS Safety Report 10330338 (Version 1)
Quarter: 2014Q3

REPORT INFORMATION
  Report Type: Spontaneous
  Country: None (occurrence: JP)
  Receive Date: 20140722
  Receipt Date: 20140722
  Transmission Date: 20150326
  Serious: Yes (Other)
  Sender: FDA-Public Use
  Company Number: JP-ACCORD-024873

PATIENT
  Age: 61 Year
  Sex: Male

DRUGS (2)
  1. CLOPIDOGREL [Suspect]
     Active Substance: CLOPIDOGREL BISULFATE
     Indication: BRAIN STEM INFARCTION
  2. ACETYLSALICYLIC ACID [Suspect]
     Active Substance: ASPIRIN
     Indication: BRAIN STEM INFARCTION

REACTIONS (3)
  - Hydrocephalus [Recovering/Resolving]
  - Cerebrovascular accident [Recovering/Resolving]
  - Intraventricular haemorrhage [Recovering/Resolving]
